FAERS Safety Report 5394332-0 (Version None)
Quarter: 2007Q3

REPORT INFORMATION
  Report Type: 
  Country: None (occurrence: None)
  Receive Date: 20070723
  Receipt Date: 20070524
  Transmission Date: 20080115
  Serious: No
  Sender: FDA-Public Use
  Company Number: A0652844A

PATIENT
  Age: 83 Year
  Sex: Male

DRUGS (11)
  1. AVANDIA [Suspect]
     Dosage: 2MG TWICE PER DAY
     Route: 048
  2. GLIMEPIRIDE [Concomitant]
  3. LABETALOL HCL [Concomitant]
  4. NEXIUM [Concomitant]
  5. FLOMAX [Concomitant]
  6. CADUET [Concomitant]
  7. QUININE SULFATE [Concomitant]
  8. CLONAZEPAM [Concomitant]
  9. MULTI-VITAMIN [Concomitant]
  10. STOOL SOFTENER [Concomitant]
  11. VITAMIN B-12 [Concomitant]

REACTIONS (1)
  - STENT OCCLUSION [None]
